FAERS Safety Report 11287802 (Version 2)
Quarter: 2015Q3

REPORT INFORMATION
  Report Type: Other
  Country: IT (occurrence: IT)
  Receive Date: 20150721
  Receipt Date: 20150821
  Transmission Date: 20151125
  Serious: Yes (Life-Threatening)
  Sender: FDA-Public Use
  Company Number: IT-MYLANLABS-2015M1024234

PATIENT

DRUGS (1)
  1. FONDAPARINUX [Suspect]
     Active Substance: FONDAPARINUX
     Indication: THROMBOSIS PROPHYLAXIS
     Dosage: 7.5MG/0.6ML
     Route: 058
     Dates: start: 20150618, end: 20150706

REACTIONS (3)
  - Pelvic haematoma [Not Recovered/Not Resolved]
  - Off label use [Unknown]
  - Haemoglobin decreased [Not Recovered/Not Resolved]

NARRATIVE: CASE EVENT DATE: 20150704
